FAERS Safety Report 4424492-7 (Version None)
Quarter: 2004Q3

REPORT INFORMATION
  Report Type: 
  Country: None (occurrence: None)
  Receive Date: 20040812
  Receipt Date: 20040810
  Transmission Date: 20050211
  Serious: Yes (Hospitalization)
  Sender: FDA-Public Use
  Company Number: FR-GLAXOSMITHKLINE-B0341943A

PATIENT
  Age: 77 Year
  Sex: Female
  Weight: 108 kg

DRUGS (12)
  1. AUGMENTIN '125' [Suspect]
     Indication: SKIN ULCER
     Route: 048
  2. PYOSTACINE [Suspect]
     Indication: SKIN ULCER
     Route: 048
  3. LASIX [Concomitant]
  4. DIFFU K [Concomitant]
  5. MIXTARD HUMAN 70/30 [Concomitant]
  6. GLUCOR [Concomitant]
  7. CORVASAL [Concomitant]
  8. HYDROCORTISONE [Concomitant]
  9. OMEPRAZOLE [Concomitant]
  10. ASPIRIN [Concomitant]
  11. PRAVASTATIN [Concomitant]
  12. LEVOTHYROXINE SODIUM [Concomitant]

REACTIONS (12)
  - ACUTE GENERALISED EXANTHEMATOUS PUSTULOSIS [None]
  - ATRIAL FIBRILLATION [None]
  - CHEST PAIN [None]
  - DERMATITIS BULLOUS [None]
  - DERMATITIS EXFOLIATIVE [None]
  - ELECTROCARDIOGRAM ST SEGMENT DEPRESSION [None]
  - LEUKOCYTOSIS [None]
  - RASH PUSTULAR [None]
  - RENAL FAILURE [None]
  - SKIN DESQUAMATION [None]
  - TACHYARRHYTHMIA [None]
  - TROPONIN I INCREASED [None]
